FAERS Safety Report 4711358-8 (Version None)
Quarter: 2005Q3

REPORT INFORMATION
  Report Type: 
  Country: None (occurrence: None)
  Receive Date: 20050708
  Receipt Date: 20050627
  Transmission Date: 20060218
  Serious: Yes (Other)
  Sender: FDA-Public Use
  Company Number: 2005095534

PATIENT
  Sex: Female
  Weight: 58.514 kg

DRUGS (3)
  1. RELPAX [Suspect]
     Indication: MIGRAINE
     Dosage: (40 MG, PRN), ORAL
     Route: 048
  2. HEPARIN SODIUM [Suspect]
     Indication: ANTIPHOSPHOLIPID SYNDROME
  3. HEPARIN SODIUM [Suspect]
     Indication: PROPHYLAXIS

REACTIONS (6)
  - ABORTION SPONTANEOUS [None]
  - ANTIPHOSPHOLIPID ANTIBODIES POSITIVE [None]
  - ARTIFICIAL INSEMINATION BY DONOR [None]
  - DRUG EXPOSURE DURING PREGNANCY [None]
  - INFERTILITY FEMALE [None]
  - METRORRHAGIA [None]
